FAERS Safety Report 4605830-9 (Version None)
Quarter: 2005Q2

REPORT INFORMATION
  Report Type: 
  Country: None (occurrence: None)
  Receive Date: 20050214
  Receipt Date: 20041020
  Transmission Date: 20051028
  Serious: No
  Sender: FDA-Public Use
  Company Number: USA041081713

PATIENT
  Age: 46 Year
  Sex: Male

DRUGS (6)
  1. CIALIS [Suspect]
     Indication: ERECTILE DYSFUNCTION
     Dosage: 20 MG
     Dates: start: 20040501
  2. NORVASC [Concomitant]
  3. BENICAR [Concomitant]
  4. ASPIRIN [Concomitant]
  5. PRILOSEC (OMEPRAZOLE RATIOPHARM) [Concomitant]
  6. SINGULAIR (MONTELUKAST) [Concomitant]

REACTIONS (1)
  - THERAPEUTIC RESPONSE INCREASED [None]
